FAERS Safety Report 6575702-1 (Version None)
Quarter: 2010Q1

REPORT INFORMATION
  Report Type: 
  Country: None (occurrence: None)
  Receive Date: 20100209
  Receipt Date: 20100202
  Transmission Date: 20100710
  Serious: Yes (Hospitalization)
  Sender: FDA-Public Use
  Company Number: US-BRISTOL-MYERS SQUIBB COMPANY-14803829

PATIENT
  Age: 52 Year
  Sex: Female

DRUGS (9)
  1. ARIPIPRAZOLE [Suspect]
     Indication: SCHIZOPHRENIA
     Dosage: ARIPIPRAZOLE IM DEPOT LAST DOSE: 20AUG09
     Route: 065
     Dates: start: 20090427, end: 20090820
  2. LEVOTHYROXINE SODIUM [Concomitant]
  3. VALSARTAN [Concomitant]
     Dates: start: 20060101
  4. LORAZEPAM [Concomitant]
     Dosage: THERAPY - ONGOING.
     Dates: start: 20090616
  5. HALDOL [Concomitant]
     Route: 048
     Dates: start: 20090914
  6. COGENTIN [Concomitant]
     Route: 048
     Dates: start: 20090914
  7. SYNTHROID [Concomitant]
     Route: 048
     Dates: start: 20090914
  8. DEPAKOTE [Concomitant]
     Route: 048
     Dates: start: 20090914
  9. DIOVAN [Concomitant]
     Dosage: 1DF-80/12.5MG
     Route: 048
     Dates: start: 20061001

REACTIONS (33)
  - ABNORMAL BEHAVIOUR [None]
  - AFFECT LABILITY [None]
  - AFFECTIVE DISORDER [None]
  - AGGRESSION [None]
  - AGITATION [None]
  - ALCOHOL USE [None]
  - BELLIGERENCE [None]
  - BLOOD TRIGLYCERIDES INCREASED [None]
  - CONDITION AGGRAVATED [None]
  - DELUSION OF GRANDEUR [None]
  - DISSOCIATION [None]
  - INSOMNIA [None]
  - IRRITABILITY [None]
  - JUDGEMENT IMPAIRED [None]
  - LETHARGY [None]
  - MANIA [None]
  - PARANOIA [None]
  - POOR PERSONAL HYGIENE [None]
  - PSYCHOMOTOR HYPERACTIVITY [None]
  - PSYCHOTIC DISORDER [None]
  - PYREXIA [None]
  - SCHIZOAFFECTIVE DISORDER [None]
  - SCHIZOPHRENIA [None]
  - SEDATION [None]
  - SOCIAL AVOIDANT BEHAVIOUR [None]
  - SOMNOLENCE [None]
  - SPEECH DISORDER [None]
  - SUICIDAL IDEATION [None]
  - SUSPICIOUSNESS [None]
  - TANGENTIALITY [None]
  - TOBACCO USER [None]
  - VERBAL ABUSE [None]
  - VICTIM OF ABUSE [None]
